FAERS Safety Report 4730852-7 (Version None)
Quarter: 2005Q3

REPORT INFORMATION
  Report Type: 
  Country: None (occurrence: None)
  Receive Date: 20050719
  Receipt Date: 20040607
  Transmission Date: 20060218
  Serious: Yes (Other)
  Sender: FDA-Public Use
  Company Number: 192948

PATIENT
  Age: 46 Year
  Sex: Female
  Weight: 59.4212 kg

DRUGS (3)
  1. AVONEX [Suspect]
     Indication: MULTIPLE SCLEROSIS
     Dosage: 30 UG;QW;IM    30 UG;QW;IM
     Route: 030
     Dates: start: 19970101, end: 20030801
  2. AVONEX [Suspect]
     Indication: MULTIPLE SCLEROSIS
     Dosage: 30 UG;QW;IM    30 UG;QW;IM
     Route: 030
     Dates: start: 20030801
  3. VITAMIN [Concomitant]

REACTIONS (1)
  - CARDIOMYOPATHY [None]
